FAERS Safety Report 6298199-8 (Version None)
Quarter: 2009Q3

REPORT INFORMATION
  Report Type: 
  Country: None (occurrence: None)
  Receive Date: 20090805
  Receipt Date: 20090731
  Transmission Date: 20100115
  Serious: Yes (Death, Other)
  Sender: FDA-Public Use
  Company Number: DE-BRISTOL-MYERS SQUIBB COMPANY-14724769

PATIENT
  Age: 31 Year
  Sex: Male

DRUGS (7)
  1. BLEOMYCIN SULFATE [Suspect]
  2. ETOPOPHOS PRESERVATIVE FREE [Suspect]
  3. ENDOXAN [Suspect]
  4. VINCRISTINE [Suspect]
  5. ADRIBLASTIN [Suspect]
  6. NATULAN [Suspect]
  7. PREDNISONE [Suspect]

REACTIONS (3)
  - DYSPNOEA [None]
  - PNEUMONIA PNEUMOCOCCAL [None]
  - SEPTIC SHOCK [None]
